FAERS Safety Report 24959301 (Version 1)
Quarter: 2025Q1

REPORT INFORMATION
  Report Type: Spontaneous
  Country: US (occurrence: US)
  Receive Date: 20250212
  Receipt Date: 20250212
  Transmission Date: 20250408
  Serious: Yes (Death, Hospitalization)
  Sender: STRIDES
  Company Number: US-STRIDES ARCOLAB LIMITED-2025SP002097

PATIENT

DRUGS (11)
  1. PREDNISOLONE [Suspect]
     Active Substance: PREDNISOLONE
     Indication: Immune-mediated myasthenia gravis
     Route: 048
  2. PREDNISOLONE [Suspect]
     Active Substance: PREDNISOLONE
     Route: 048
  3. PEMBROLIZUMAB [Suspect]
     Active Substance: PEMBROLIZUMAB
     Indication: Bladder transitional cell carcinoma
     Route: 042
     Dates: start: 2022
  4. METHYLPREDNISOLONE [Suspect]
     Active Substance: METHYLPREDNISOLONE
     Indication: Immune-mediated myasthenia gravis
     Route: 042
  5. ECULIZUMAB [Suspect]
     Active Substance: ECULIZUMAB
     Indication: Immune-mediated myasthenia gravis
     Route: 042
  6. ECULIZUMAB [Suspect]
     Active Substance: ECULIZUMAB
     Route: 042
  7. ECULIZUMAB [Suspect]
     Active Substance: ECULIZUMAB
     Route: 042
  8. RAVULIZUMAB [Suspect]
     Active Substance: RAVULIZUMAB
     Indication: Immune-mediated myasthenia gravis
     Route: 042
  9. RAVULIZUMAB [Suspect]
     Active Substance: RAVULIZUMAB
     Route: 042
  10. CEFPODOXIME [Concomitant]
     Active Substance: CEFPODOXIME
     Indication: Prophylaxis
     Route: 065
  11. MENINGOCOCCAL POLYSACCHARIDE VACCINE A NOS [Concomitant]
     Active Substance: MENINGOCOCCAL POLYSACCHARIDE VACCINE A\NEISSERIA MENINGITIDIS GROUP A CAPSULAR POLYSACCHARIDE ANTIGE
     Indication: Meningococcal immunisation
     Route: 065

REACTIONS (5)
  - Metastatic carcinoma of the bladder [Fatal]
  - Bladder transitional cell carcinoma [Fatal]
  - Urinary tract infection [Unknown]
  - Septic shock [Unknown]
  - Myopathy [Unknown]
